FAERS Safety Report 6303709-8 (Version None)
Quarter: 2009Q3

REPORT INFORMATION
  Report Type: 
  Country: None (occurrence: None)
  Receive Date: 20090810
  Receipt Date: 20090731
  Transmission Date: 20100115
  Serious: Yes (Death, Hospitalization)
  Sender: FDA-Public Use
  Company Number: GR-AMGEN-UK358354

PATIENT
  Age: 80 Year
  Sex: Female

DRUGS (9)
  1. MIMPARA [Suspect]
     Indication: HYPERPARATHYROIDISM SECONDARY
     Route: 065
  2. PARICALCITOL [Concomitant]
     Route: 051
  3. SEVELAMER [Concomitant]
     Route: 065
  4. ERYTHROPOIETIN HUMAN [Concomitant]
     Route: 065
  5. PRAVASTATIN [Concomitant]
     Route: 065
  6. FOLIC ACID [Concomitant]
     Route: 065
  7. BROMAZEPAM [Concomitant]
     Route: 065
  8. HYDROXYZINE [Concomitant]
     Route: 065
  9. LANSOPRAZOLE [Concomitant]
     Route: 065

REACTIONS (4)
  - ABDOMINAL PAIN UPPER [None]
  - ACUTE MYOCARDIAL INFARCTION [None]
  - LEUKOCYTOCLASTIC VASCULITIS [None]
  - PURPURA [None]
